FAERS Safety Report 19449099 (Version 5)
Quarter: 2024Q4

REPORT INFORMATION
  Report Type: Report from Study
  Country: IT (occurrence: IT)
  Receive Date: 20210622
  Receipt Date: 20241114
  Transmission Date: 20250114
  Serious: Yes (Life-Threatening, Hospitalization, Other)
  Sender: TAKEDA
  Company Number: IT-TAKEDA-2021TUS037631

PATIENT
  Age: 61 Year
  Sex: Male

DRUGS (7)
  1. TEDUGLUTIDE [Suspect]
     Active Substance: TEDUGLUTIDE
     Indication: Short-bowel syndrome
     Dosage: 2 MILLIGRAM, QD
     Dates: start: 20191005, end: 202002
  2. TEDUGLUTIDE [Suspect]
     Active Substance: TEDUGLUTIDE
     Dosage: 2 MILLIGRAM, QD
     Dates: start: 20200318, end: 20201105
  3. TEDUGLUTIDE [Suspect]
     Active Substance: TEDUGLUTIDE
  4. TEDUGLUTIDE [Suspect]
     Active Substance: TEDUGLUTIDE
  5. MEROPENEM [Concomitant]
     Active Substance: MEROPENEM
     Indication: Klebsiella sepsis
     Dosage: 1 GRAM, BID
     Dates: start: 20201122, end: 20201208
  6. IMODIUM [Concomitant]
     Active Substance: LOPERAMIDE HYDROCHLORIDE
     Indication: Prophylaxis
     Dosage: 2 MILLIGRAM, QD
     Dates: start: 202003
  7. KCL RETARD SLOW K [Concomitant]
     Indication: Supplementation therapy
     Dosage: 600 MILLIGRAM, TID
     Dates: start: 20190924, end: 20191014

REACTIONS (4)
  - Suicide attempt [Recovered/Resolved]
  - Stoma site haemorrhage [Recovered/Resolved]
  - COVID-19 pneumonia [Recovered/Resolved]
  - Vascular device infection [Recovered/Resolved]

NARRATIVE: CASE EVENT DATE: 20201007
